FAERS Safety Report 9669983 (Version 1)
Quarter: 2013Q4

REPORT INFORMATION
  Report Type: Spontaneous
  Country: RO (occurrence: RO)
  Receive Date: 20131105
  Receipt Date: 20131105
  Transmission Date: 20140711
  Serious: Yes (Life-Threatening, Other)
  Sender: FDA-Public Use
  Company Number: RO-GLAXOSMITHKLINE-B0939356A

PATIENT
  Age: 26 Year
  Sex: Male

DRUGS (1)
  1. ZINNAT [Suspect]
     Indication: UPPER RESPIRATORY TRACT INFECTION
     Dosage: 500MG PER DAY
     Route: 065
     Dates: start: 20131030, end: 20131030

REACTIONS (1)
  - Anaphylactic shock [Not Recovered/Not Resolved]
